FAERS Safety Report 19716997 (Version 2)
Quarter: 2021Q3

REPORT INFORMATION
  Report Type: Report from Study
  Country: CA (occurrence: CA)
  Receive Date: 20210818
  Receipt Date: 20210907
  Transmission Date: 20211014
  Serious: No
  Sender: FDA-Public Use
  Company Number: CA-ASTRAZENECA-2021A680101

PATIENT
  Sex: Female

DRUGS (3)
  1. ELLIPTA [Concomitant]
  2. VENTOLINE [Concomitant]
     Active Substance: ALBUTEROL
  3. FASENRA [Suspect]
     Active Substance: BENRALIZUMAB
     Indication: ASTHMA
     Dosage: 30.0MG UNKNOWN
     Route: 058
     Dates: start: 20191107

REACTIONS (2)
  - Drug ineffective [Unknown]
  - Dyspnoea [Unknown]
